FAERS Safety Report 20707227 (Version 2)
Quarter: 2022Q2

REPORT INFORMATION
  Report Type: Spontaneous
  Country: US (occurrence: US)
  Receive Date: 20220413
  Receipt Date: 20220613
  Transmission Date: 20220721
  Serious: No
  Sender: FDA-Public Use
  Company Number: US-SUNOVION-2022SUN001115

PATIENT
  Sex: Female

DRUGS (1)
  1. XOPENEX [Suspect]
     Active Substance: LEVALBUTEROL HYDROCHLORIDE
     Dosage: UNKNOWN (2 PUFFS, EVERY 4-6 HOURS)
     Route: 055

REACTIONS (5)
  - Increased upper airway secretion [Unknown]
  - Increased bronchial secretion [Unknown]
  - Therapeutic product effect decreased [Unknown]
  - Product taste abnormal [Unknown]
  - Product communication issue [Unknown]
